FAERS Safety Report 4454162-0 (Version None)
Quarter: 2004Q3

REPORT INFORMATION
  Report Type: 
  Country: None (occurrence: None)
  Receive Date: 20040826
  Receipt Date: 20040518
  Transmission Date: 20050211
  Serious: Yes (Disabling)
  Sender: FDA-Public Use
  Company Number: WAES 0405USA01318

PATIENT
  Age: 72 Year
  Sex: Female

DRUGS (7)
  1. ZETIA [Suspect]
     Indication: BLOOD CHOLESTEROL INCREASED
     Dosage: 10 MG/DAILY/PO
     Route: 048
     Dates: start: 20031101
  2. HYDRODIURIL [Concomitant]
  3. LUMIGAN [Concomitant]
  4. VASOTEC [Concomitant]
  5. ASPIRIN [Concomitant]
  6. DILTIAZEM HYDROCHLORIDE [Concomitant]
  7. PILOCARPINE [Concomitant]

REACTIONS (1)
  - MYALGIA [None]
